FAERS Safety Report 9855094 (Version 1)
Quarter: 2013Q4

REPORT INFORMATION
  Report Type: Spontaneous
  Country: US (occurrence: None)
  Receive Date: 20131226
  Receipt Date: 20131226
  Transmission Date: 20140711
  Serious: No
  Sender: FDA-Public Use
  Company Number: PHHY2013US019144

PATIENT
  Age: 47 Year
  Sex: Female

DRUGS (15)
  1. GILENYA (FINGOLIMOD) CAPSULE, 0.5MG [Suspect]
     Indication: MULTIPLE SCLEROSIS
     Route: 048
     Dates: start: 20120222, end: 20121113
  2. PROVIGIL (MODAFINIL) [Concomitant]
  3. PRILOSEC (OMEPRAZOLE) [Concomitant]
  4. PROZAC (FLUOXETINE HYDROCHLORIDE) [Concomitant]
  5. VITAMIN C (ASCORBIC ACID) [Concomitant]
  6. VITAMIN D (ERGOCALCIFEROL) [Concomitant]
  7. B COMPLEX (NICOTINAMIDE, PYRIDOXINE HYDROCHLORIDE, RIBOFLAVIN, THIAMINE HYDROCHLORIDE) [Concomitant]
  8. IRON (IRON) [Concomitant]
  9. CELEBREX (CELECOXIB) [Concomitant]
  10. MOTRIN IB (IBUPROFEN) [Concomitant]
  11. FLAGYL (METRONIDAZOLE BENZOATE) [Concomitant]
  12. CIPRO ^MILES^ (CIPROFLOXACIN HYDROCHLORIDE) [Concomitant]
  13. TORADOL (KETOROLAC TROMETHAMINE) [Concomitant]
  14. ZOFRAN (ONDANSETRON HYDROCHLORIDE) [Concomitant]
  15. FIBER (POLYCARBOPHIL CALCIUM) [Concomitant]

REACTIONS (1)
  - Diverticulitis [None]
